FAERS Safety Report 9787980 (Version 2)
Quarter: 2015Q2

REPORT INFORMATION
  Report Type: Report from Study
  Country: US (occurrence: US)
  Receive Date: 20131230
  Receipt Date: 20150626
  Transmission Date: 20150821
  Serious: Yes (Death, Hospitalization)
  Sender: FDA-Public Use
  Company Number: US-ACTELION-A-NJ2013-92838

PATIENT
  Age: 50 Year
  Sex: Male

DRUGS (12)
  1. FUROSEMIDE. [Concomitant]
     Active Substance: FUROSEMIDE
  2. LANSOPRAZOLE. [Concomitant]
     Active Substance: LANSOPRAZOLE
  3. ALBUTEROL. [Concomitant]
     Active Substance: ALBUTEROL
  4. BUDESONIDE W/FORMOTEROL FUMARATE [Concomitant]
     Active Substance: BUDESONIDE\FORMOTEROL FUMARATE
  5. SPIRONOLACTONE. [Concomitant]
     Active Substance: SPIRONOLACTONE
  6. TRAMADOL [Concomitant]
     Active Substance: TRAMADOL
  7. GABAPENTIN. [Concomitant]
     Active Substance: GABAPENTIN
  8. CITALOPRAM [Concomitant]
     Active Substance: CITALOPRAM HYDROBROMIDE
  9. TIOTROPIUM [Concomitant]
     Active Substance: TIOTROPIUM
  10. METOLAZONE. [Concomitant]
     Active Substance: METOLAZONE
  11. TRACLEER [Suspect]
     Active Substance: BOSENTAN\BOSENTAN MONOHYDRATE
     Indication: PULMONARY ARTERIAL HYPERTENSION
     Dosage: 125 MG, BID
     Route: 048
     Dates: start: 2009, end: 20131210
  12. REMODULIN [Concomitant]
     Active Substance: TREPROSTINIL

REACTIONS (19)
  - Acute respiratory failure [Fatal]
  - Anaemia [Unknown]
  - Fluid overload [Unknown]
  - Lethargy [Unknown]
  - Oedema peripheral [Unknown]
  - Oxygen saturation decreased [Unknown]
  - Tachycardia [Unknown]
  - Hyponatraemia [Unknown]
  - Chest pain [Unknown]
  - Haematoma [Unknown]
  - Chest discomfort [Unknown]
  - Pulmonary hypertension [Fatal]
  - Cardiac failure [Fatal]
  - Transfusion [Unknown]
  - Dyspnoea [Unknown]
  - Hypoxia [Unknown]
  - Pericardial effusion [Unknown]
  - Hypotension [Unknown]
  - Tachypnoea [Unknown]

NARRATIVE: CASE EVENT DATE: 20131113
